FAERS Safety Report 8196496-2 (Version None)
Quarter: 2012Q1

REPORT INFORMATION
  Report Type: 
  Country: None (occurrence: None)
  Receive Date: 20120309
  Receipt Date: 20120229
  Transmission Date: 20120608
  Serious: Yes (Hospitalization, Other)
  Sender: FDA-Public Use
  Company Number: DE-ELI_LILLY_AND_COMPANY-DE201203000042

PATIENT
  Age: 79 Year
  Sex: Male
  Weight: 66 kg

DRUGS (4)
  1. EFFIENT [Suspect]
     Indication: ACUTE MYOCARDIAL INFARCTION
     Dosage: 60 MG, LOADING DOSE
  2. EFFIENT [Suspect]
     Dosage: 10 MG, QD
     Dates: start: 20110829
  3. ASPIRIN [Concomitant]
     Dosage: 100 MG, UNK
  4. ASPIRIN [Concomitant]
     Dosage: 500 MG, LOADING

REACTIONS (2)
  - PNEUMONIA [None]
  - HAEMOPTYSIS [None]
